FAERS Safety Report 20377285 (Version 1)
Quarter: 2022Q1

REPORT INFORMATION
  Report Type: Report from Study
  Country: US (occurrence: US)
  Receive Date: 20220126
  Receipt Date: 20220126
  Transmission Date: 20220423
  Serious: No
  Sender: FDA-Public Use
  Company Number: US-NOVARTISTESTPH-NVSC2022US015919

PATIENT
  Sex: Male
  Weight: 102.04 kg

DRUGS (2)
  1. ENTRESTO [Suspect]
     Active Substance: SACUBITRIL\VALSARTAN
     Indication: Product used for unknown indication
     Dosage: (49/51 MG), BID
     Route: 048
     Dates: start: 20200124, end: 20220124
  2. ENTRESTO [Suspect]
     Active Substance: SACUBITRIL\VALSARTAN
     Dosage: 24/26 MG
     Route: 048

REACTIONS (2)
  - COVID-19 [Unknown]
  - Cardiac disorder [Unknown]
